FAERS Safety Report 6942800-X (Version None)
Quarter: 2010Q3

REPORT INFORMATION
  Report Type: 
  Country: None (occurrence: None)
  Receive Date: 20100826
  Receipt Date: 20100823
  Transmission Date: 20110219
  Serious: Yes (Life-Threatening, Hospitalization)
  Sender: FDA-Public Use
  Company Number: GB-ROCHE-712081

PATIENT
  Sex: Female
  Weight: 59 kg

DRUGS (6)
  1. BEVACIZUMAB [Suspect]
     Indication: BREAST CANCER
     Dosage: DOSE LEVEL: 15 MG/KG, FORM: VIAL, LAST DOSE RECEIVED PRIOR TO SAE ON 09 JULY 2010
     Route: 042
     Dates: start: 20100618, end: 20100718
  2. TRASTUZUMAB [Suspect]
     Indication: BREAST CANCER
     Dosage: LOADING DOSE, TOTAL DOSE: 472.5 MG, FORM: VIAL, LAST DOSE PRIOR TO SAE: 17 JUNE 2010
     Route: 042
     Dates: start: 20100617
  3. TRASTUZUMAB [Suspect]
     Dosage: TOTAL DOSE 357 MG, LAST DOSE PRIOR TO SAE WAS 09 JULY 2010
     Route: 042
     Dates: end: 20100718
  4. DOCETAXEL [Suspect]
     Indication: BREAST CANCER
     Dosage: DOSE LEVEL: 75 MG/M2, FORM VIAL, LAST DOSE PRIOR TO SAE: 09 JULY 2010.
     Route: 042
     Dates: start: 20100618, end: 20100718
  5. CARBOPLATIN [Suspect]
     Indication: BREAST CANCER
     Dosage: DOSE LEVEL: 6 AUC, FORM: VIAL, LAST DOSE PRIOR TO SAE ON 09 JULY 2010.
     Route: 042
     Dates: start: 20100618, end: 20100718
  6. METOCLOPRAMIDE [Concomitant]
     Dates: start: 20100618

REACTIONS (6)
  - ABDOMINAL PAIN [None]
  - DIARRHOEA [None]
  - DISSEMINATED INTRAVASCULAR COAGULATION [None]
  - FEBRILE NEUTROPENIA [None]
  - INTESTINAL ISCHAEMIA [None]
  - NEUTROPENIC SEPSIS [None]
